FAERS Safety Report 15715144 (Version 1)
Quarter: 2018Q4

REPORT INFORMATION
  Report Type: Spontaneous
  Country: CA (occurrence: CA)
  Receive Date: 20181212
  Receipt Date: 20181212
  Transmission Date: 20190205
  Serious: Yes (Life-Threatening, Hospitalization)
  Sender: FDA-Public Use
  Company Number: CA-ELI_LILLY_AND_COMPANY-CA201812003264

PATIENT
  Age: 9 Year
  Sex: Male

DRUGS (8)
  1. STRATTERA [Suspect]
     Active Substance: ATOMOXETINE HYDROCHLORIDE
     Indication: PRODUCT USED FOR UNKNOWN INDICATION
     Dosage: 1 DF, DAILY
     Route: 065
  2. CONCERTA [Suspect]
     Active Substance: METHYLPHENIDATE HYDROCHLORIDE
     Indication: RHINORRHOEA
     Dosage: UNK, UNKNOWN
     Route: 065
  3. CONCERTA [Suspect]
     Active Substance: METHYLPHENIDATE HYDROCHLORIDE
     Indication: DYSPHAGIA
  4. TYLENOL 8HR [Suspect]
     Active Substance: ACETAMINOPHEN
     Indication: RHINORRHOEA
     Dosage: 80 MG, TOTAL
     Route: 048
  5. CONCERTA [Suspect]
     Active Substance: METHYLPHENIDATE HYDROCHLORIDE
     Indication: OROPHARYNGEAL PAIN
  6. DIPHENHYDRAMINE HYDROCHLORIDE. [Suspect]
     Active Substance: DIPHENHYDRAMINE HYDROCHLORIDE
     Indication: NASOPHARYNGITIS
     Dosage: 2 DF, TOTAL
     Route: 048
  7. TYLENOL 8HR [Suspect]
     Active Substance: ACETAMINOPHEN
     Indication: OROPHARYNGEAL PAIN
  8. TYLENOL 8HR [Suspect]
     Active Substance: ACETAMINOPHEN
     Indication: DYSPHAGIA

REACTIONS (8)
  - Hunger [Unknown]
  - Oropharyngeal pain [Unknown]
  - Product use issue [Unknown]
  - Ear infection [Unknown]
  - Drug ineffective [Unknown]
  - Seizure [Unknown]
  - Blood pressure decreased [Unknown]
  - Tremor [Unknown]
